FAERS Safety Report 7764634-9 (Version None)
Quarter: 2011Q3

REPORT INFORMATION
  Report Type: 
  Country: None (occurrence: None)
  Receive Date: 20110921
  Receipt Date: 20110914
  Transmission Date: 20111222
  Serious: Yes (Life-Threatening, Hospitalization)
  Sender: FDA-Public Use
  Company Number: PHFR2011GB05233

PATIENT
  Sex: Female

DRUGS (6)
  1. CHLORPROMAZINE [Concomitant]
  2. CLOZAPINE [Suspect]
     Indication: SCHIZOPHRENIA
     Dosage: UNK UKN, UNK
     Route: 048
     Dates: start: 20100210, end: 20110826
  3. CLOZAPINE [Suspect]
     Dosage: 12.5 MG/DAY
     Route: 048
     Dates: start: 20110907
  4. MORPHINE [Concomitant]
  5. CLOZAPINE [Suspect]
     Dosage: 62.5 MG/DAY
     Route: 048
  6. MIDAZOLAM HCL [Concomitant]

REACTIONS (2)
  - WOUND INFECTION [None]
  - INTENTIONAL SELF-INJURY [None]
